FAERS Safety Report 12096357 (Version 3)
Quarter: 2016Q1

REPORT INFORMATION
  Report Type: Spontaneous
  Country: GB (occurrence: GB)
  Receive Date: 20160220
  Receipt Date: 20160321
  Transmission Date: 20160526
  Serious: Yes (Other)
  Sender: FDA-Public Use
  Company Number: GB-AMGEN-GBRSP2016011114

PATIENT
  Sex: Female

DRUGS (4)
  1. ALBUMIN [Concomitant]
     Active Substance: ALBUMIN (HUMAN)
     Dosage: UNK
     Route: 042
  2. NPLATE [Suspect]
     Active Substance: ROMIPLOSTIM
     Indication: PRODUCT USED FOR UNKNOWN INDICATION
     Dosage: UNK
     Route: 058
  3. APREPITANT. [Concomitant]
     Active Substance: APREPITANT
  4. NEUPOGEN [Concomitant]
     Active Substance: FILGRASTIM

REACTIONS (19)
  - Nausea [Recovering/Resolving]
  - Decreased appetite [Recovering/Resolving]
  - Dyspnoea [Recovering/Resolving]
  - Dry skin [Not Recovered/Not Resolved]
  - Fatigue [Not Recovered/Not Resolved]
  - Constipation [Unknown]
  - Ascites [Unknown]
  - Jaundice [Unknown]
  - Urine output decreased [Unknown]
  - Hypoaesthesia [Not Recovered/Not Resolved]
  - Neuropathy peripheral [Unknown]
  - Insomnia [Recovering/Resolving]
  - Toxicity to various agents [Unknown]
  - Diarrhoea [Recovering/Resolving]
  - Asthenia [Recovering/Resolving]
  - Paraesthesia [Recovering/Resolving]
  - Sleep disorder [Not Recovered/Not Resolved]
  - Dysuria [Unknown]
  - Abdominal pain [Recovered/Resolved]
